FAERS Safety Report 6272912-8 (Version None)
Quarter: 2009Q3

REPORT INFORMATION
  Report Type: 
  Country: None (occurrence: None)
  Receive Date: 20090717
  Receipt Date: 20090707
  Transmission Date: 20100115
  Serious: Yes (Hospitalization)
  Sender: FDA-Public Use
  Company Number: US-PFIZER INC-2009238856

PATIENT
  Sex: Male
  Weight: 63.502 kg

DRUGS (1)
  1. CHANTIX [Suspect]
     Indication: SMOKING CESSATION THERAPY
     Dosage: FREQUENCY: 2X/DAY, EVERY DAY;
     Route: 048
     Dates: start: 20090601, end: 20090630

REACTIONS (7)
  - CHEST PAIN [None]
  - FALL [None]
  - FLUSHING [None]
  - HEADACHE [None]
  - INJURY [None]
  - NAUSEA [None]
  - SYNCOPE [None]
